FAERS Safety Report 9385816 (Version 2)
Quarter: 2013Q3

REPORT INFORMATION
  Report Type: Report from Study
  Country: JP (occurrence: JP)
  Receive Date: 20130705
  Receipt Date: 20130719
  Transmission Date: 20140515
  Serious: No
  Sender: FDA-Public Use
  Company Number: JP-B.I. PHARMACEUTICALS,INC./RIDGEFIELD-2013-BI-18677NB

PATIENT
  Sex: Male
  Weight: 66 kg

DRUGS (7)
  1. PRADAXA [Suspect]
     Indication: CEREBROVASCULAR ACCIDENT PROPHYLAXIS
     Dosage: 220 MG
     Route: 048
     Dates: start: 20121120
  2. ARTIST [Concomitant]
     Indication: CARDIAC FAILURE
     Dosage: 5 MG
     Route: 048
  3. BAYASPIRIN [Concomitant]
     Indication: PROPHYLAXIS
     Dosage: 100 MG
     Route: 048
     Dates: start: 2010
  4. OMEPRAL [Concomitant]
     Indication: PROPHYLAXIS
     Dosage: 20 MG
     Route: 048
  5. BLOPRESS [Concomitant]
     Indication: CARDIAC FAILURE
     Dosage: 4 MG
     Route: 048
  6. DIART [Concomitant]
     Indication: CARDIAC FAILURE
     Dosage: 60 MG
     Route: 048
     Dates: start: 20121120
  7. ALDACTONE A [Concomitant]
     Indication: CARDIAC FAILURE
     Dosage: 25 MG
     Route: 048
     Dates: start: 20121120

REACTIONS (1)
  - No adverse event [Unknown]
